FAERS Safety Report 5023619-6 (Version None)
Quarter: 2006Q2

REPORT INFORMATION
  Report Type: 
  Country: None (occurrence: None)
  Receive Date: 20060606
  Receipt Date: 20060525
  Transmission Date: 20061013
  Serious: Yes (Other)
  Sender: FDA-Public Use
  Company Number: SGBI-2006-00301

PATIENT
  Age: 48 Year
  Sex: Female

DRUGS (2)
  1. LANTHANUM CARBONATE (LANTHANUM CARBONATE) TABLET CHEWABLE [Suspect]
     Indication: HYPERPHOSPHATAEMIA
     Dosage: 1500 + 750 MG, TOTAL DAILY DOSE, ORAL
     Route: 048
     Dates: start: 20050510, end: 20050523
  2. LANTHANUM CARBONATE (LANTHANUM CARBONATE) TABLET CHEWABLE [Suspect]
     Indication: HYPERPHOSPHATAEMIA
     Dosage: 1500 + 750 MG, TOTAL DAILY DOSE, ORAL
     Route: 048
     Dates: start: 20050524, end: 20060525

REACTIONS (1)
  - BREAST CANCER FEMALE [None]
